FAERS Safety Report 8065167-5 (Version None)
Quarter: 2012Q1

REPORT INFORMATION
  Report Type: 
  Country: None (occurrence: None)
  Receive Date: 20120117
  Receipt Date: 20120105
  Transmission Date: 20120608
  Serious: Yes (Other)
  Sender: FDA-Public Use
  Company Number: 1000026730

PATIENT
  Sex: Female

DRUGS (1)
  1. VIIBRYD [Suspect]

REACTIONS (3)
  - MEMORY IMPAIRMENT [None]
  - PSYCHOTIC DISORDER [None]
  - DELIRIUM [None]
